FAERS Safety Report 25373493 (Version 1)
Quarter: 2025Q2

REPORT INFORMATION
  Report Type: Report from Study
  Country: US (occurrence: US)
  Receive Date: 20250529
  Receipt Date: 20250529
  Transmission Date: 20250716
  Serious: Yes (Hospitalization)
  Sender: TAKEDA
  Company Number: US-TAKEDA-2025TUS049257

PATIENT
  Age: 65 Year
  Sex: Female

DRUGS (1)
  1. MARIBAVIR [Suspect]
     Active Substance: MARIBAVIR
     Indication: Product used for unknown indication
     Dosage: UNK UNK, BID
     Dates: start: 20250429

REACTIONS (4)
  - Cytomegalovirus infection [Unknown]
  - Viral load increased [Recovering/Resolving]
  - Gait disturbance [Unknown]
  - Dyspnoea [Unknown]

NARRATIVE: CASE EVENT DATE: 20250522
